FAERS Safety Report 5068391-9 (Version None)
Quarter: 2006Q3

REPORT INFORMATION
  Report Type: 
  Country: None (occurrence: None)
  Receive Date: 20060802
  Receipt Date: 20050907
  Transmission Date: 20061208
  Serious: No
  Sender: FDA-Public Use
  Company Number: US-BRISTOL-MYERS SQUIBB COMPANY-13102652

PATIENT
  Age: 67 Year
  Sex: Male
  Weight: 109 kg

DRUGS (9)
  1. COUMADIN [Suspect]
     Indication: ATRIAL FIBRILLATION
     Dosage: STARTED MAY-05 IN VARYING DOSES; MOST RECENTLY: 5MG, 4 X'S WEEK + 7.5 MG, 2 X'S WEEK,DOSE REDUCED
     Route: 048
     Dates: start: 20050501
  2. ASPIRIN [Concomitant]
     Dates: start: 20050501
  3. LOPRESSOR [Concomitant]
  4. LIPITOR [Concomitant]
  5. ZESTRIL [Concomitant]
  6. ASCORBIC ACID [Concomitant]
  7. CENTRUM SILVER [Concomitant]
  8. CALCIUM GLUCONATE [Concomitant]
  9. MOVE FREE [Concomitant]

REACTIONS (1)
  - INTERNATIONAL NORMALISED RATIO INCREASED [None]
